FAERS Safety Report 10766640 (Version 2)
Quarter: 2015Q1

REPORT INFORMATION
  Report Type: Report from Study
  Country: US (occurrence: US)
  Receive Date: 20150205
  Receipt Date: 20150320
  Transmission Date: 20150721
  Serious: Yes (Other)
  Sender: FDA-Public Use
  Company Number: PHEH2014US018944

PATIENT
  Sex: Female

DRUGS (2)
  1. SANDOSTATIN LAR DEPOT [Suspect]
     Active Substance: OCTREOTIDE ACETATE
     Indication: CARCINOID SYNDROME
     Dosage: 30 MG
     Route: 065
  2. SANDOSTATIN LAR DEPOT [Suspect]
     Active Substance: OCTREOTIDE ACETATE
     Dosage: 30 MG, ONCE EVERY 2 WEEKS
     Route: 065

REACTIONS (9)
  - Blood chromogranin A increased [Unknown]
  - Nasal congestion [Unknown]
  - Constipation [Unknown]
  - Metastases to lymph nodes [Unknown]
  - 5-hydroxyindolacetic acid increased [Unknown]
  - Oropharyngeal pain [Unknown]
  - Malignant neoplasm progression [Unknown]
  - Metastases to liver [Unknown]
  - Upper respiratory tract infection [Unknown]
